FAERS Safety Report 11502235 (Version 2)
Quarter: 2015Q4

REPORT INFORMATION
  Report Type: Spontaneous
  Country: US (occurrence: US)
  Receive Date: 20150914
  Receipt Date: 20151007
  Transmission Date: 20160304
  Serious: Yes (Hospitalization)
  Sender: FDA-Public Use
  Company Number: US-NPS_PHARMACEUTICALS-002294

PATIENT
  Age: 28 Year
  Sex: Male

DRUGS (3)
  1. GATTEX [Suspect]
     Active Substance: TEDUGLUTIDE\WATER
     Indication: SHORT-BOWEL SYNDROME
     Dosage: DF
     Route: 058
     Dates: start: 20150707
  2. TPN [Concomitant]
     Active Substance: AMINO ACIDS\DEXTROSE\ELECTROLYTES NOS\SOYBEAN OIL
     Dosage: DF
  3. TPN [Concomitant]
     Active Substance: AMINO ACIDS\DEXTROSE\ELECTROLYTES NOS\SOYBEAN OIL
     Indication: MEDICAL DIET
     Dosage: [DF] INCREASED WHILE IN THE HOSPITAL

REACTIONS (7)
  - Drug dose omission [Unknown]
  - Weight decreased [Unknown]
  - Respiratory arrest [Unknown]
  - Dehydration [Unknown]
  - Accidental overdose [Unknown]
  - Blood sodium decreased [Unknown]
  - Aspiration [Unknown]

NARRATIVE: CASE EVENT DATE: 2015
